FAERS Safety Report 18652204 (Version 2)
Quarter: 2021Q1

REPORT INFORMATION
  Report Type: Spontaneous
  Country: US (occurrence: US)
  Receive Date: 20201222
  Receipt Date: 20210119
  Transmission Date: 20210419
  Serious: Yes (Other)
  Sender: FDA-Public Use
  Company Number: US-ELI_LILLY_AND_COMPANY-US202012009663

PATIENT
  Age: 40 Year
  Sex: Male
  Weight: 113.4 kg

DRUGS (1)
  1. BAMLANIVIMAB 700MG [Suspect]
     Active Substance: BAMLANIVIMAB
     Indication: COVID-19
     Dosage: 700 MG, SINGLE
     Route: 042
     Dates: start: 20201205, end: 20201205

REACTIONS (9)
  - Gastrointestinal sounds abnormal [Recovered/Resolved]
  - Dyspnoea [Recovered/Resolved]
  - Cough [Recovered/Resolved]
  - Pain [Recovered/Resolved]
  - Abdominal pain [Recovered/Resolved]
  - Nasal congestion [Recovered/Resolved]
  - Dizziness [Recovered/Resolved]
  - Chest pain [Recovered/Resolved]
  - Nausea [Recovered/Resolved]

NARRATIVE: CASE EVENT DATE: 20201207
